FAERS Safety Report 6643361-5 (Version None)
Quarter: 2010Q1

REPORT INFORMATION
  Report Type: 
  Country: None (occurrence: None)
  Receive Date: 20100319
  Receipt Date: 20100309
  Transmission Date: 20100710
  Serious: Yes (Hospitalization)
  Sender: FDA-Public Use
  Company Number: PHHY2010FR14137

PATIENT
  Age: 61 Year
  Sex: Male

DRUGS (11)
  1. ESIDRIX [Suspect]
     Dosage: 25 MG, UNK
  2. PRAZOSIN HCL [Interacting]
  3. TEMERIT [Interacting]
     Dosage: 5 MG, UNK
  4. TRIATEC [Interacting]
     Dosage: 10 MG, UNK
  5. AMLOR [Interacting]
     Dosage: 10 MG, UNK
  6. TEGRETOL [Concomitant]
     Dosage: 200 MG, UNK
  7. CRESTOR [Concomitant]
     Dosage: 10 MG, UNK
  8. NEXIUM [Concomitant]
     Dosage: 20 MG, UNK
  9. KARDEGIC [Concomitant]
     Dosage: 75 MG, UNK
  10. GLUCOPHAGE [Concomitant]
     Dosage: 500 MG, UNK
  11. INSULIN [Concomitant]

REACTIONS (5)
  - BLOOD PRESSURE FLUCTUATION [None]
  - DRUG INTERACTION [None]
  - LOSS OF CONSCIOUSNESS [None]
  - MALAISE [None]
  - ORTHOSTATIC HYPOTENSION [None]
